FAERS Safety Report 8129960-2 (Version None)
Quarter: 2012Q1

REPORT INFORMATION
  Report Type: 
  Country: None (occurrence: None)
  Receive Date: 20120210
  Receipt Date: 20120201
  Transmission Date: 20120608
  Serious: Yes (Hospitalization, Other)
  Sender: FDA-Public Use
  Company Number: US-ABBOTT-12P-163-0900796-00

PATIENT
  Sex: Female
  Weight: 92.162 kg

DRUGS (16)
  1. PROTONIX [Concomitant]
     Indication: GASTROOESOPHAGEAL REFLUX DISEASE
  2. ALBUTEROL [Concomitant]
     Indication: ASTHMA
  3. NOVALOG 70/30 [Concomitant]
     Indication: DIABETES MELLITUS
  4. HUMIRA [Suspect]
     Indication: CROHN'S DISEASE
     Route: 058
     Dates: start: 20111213, end: 20111227
  5. ZANTAC [Concomitant]
     Indication: GASTROOESOPHAGEAL REFLUX DISEASE
  6. LEDISIN [Concomitant]
     Indication: GASTROINTESTINAL PAIN
  7. PHENERGAN [Concomitant]
     Indication: NAUSEA
  8. SIMVASTATIN [Concomitant]
     Indication: BLOOD CHOLESTEROL
  9. ATIVAN [Concomitant]
     Indication: ANXIETY
  10. VITAMIN D [Concomitant]
     Indication: MINERAL SUPPLEMENTATION
  11. IMODIUM [Concomitant]
     Indication: DIARRHOEA
  12. EFFEXOR [Concomitant]
     Indication: DEPRESSION
  13. HUMIRA [Suspect]
     Indication: RHEUMATOID ARTHRITIS
  14. NUVIGIL [Concomitant]
     Indication: SOMNOLENCE
  15. LITHIUM CARBONATE [Concomitant]
     Indication: BIPOLAR DISORDER
  16. IRON [Concomitant]
     Indication: MINERAL SUPPLEMENTATION
     Dosage: DAILY DOSE: 325MG

REACTIONS (5)
  - VITAMIN D DECREASED [None]
  - INTESTINAL OBSTRUCTION [None]
  - ANAEMIA [None]
  - INCISIONAL HERNIA [None]
  - ABDOMINAL PAIN UPPER [None]
